FAERS Safety Report 21345911 (Version 1)
Quarter: 2022Q3

REPORT INFORMATION
  Report Type: Spontaneous
  Country: SE (occurrence: SE)
  Receive Date: 20220916
  Receipt Date: 20220916
  Transmission Date: 20221027
  Serious: Yes (Other)
  Sender: FDA-Public Use
  Company Number: SE-ROCHE-3168707

PATIENT
  Sex: Female

DRUGS (8)
  1. BENDAMUSTINE HYDROCHLORIDE [Suspect]
     Active Substance: BENDAMUSTINE HYDROCHLORIDE
     Indication: Diffuse large B-cell lymphoma
     Dosage: [3RD LINE SYSTEMIC TREATMENT (RITUXIMAB+BENDAMUSTIN), COMPLETE REMISSION]
     Route: 042
     Dates: start: 20150606, end: 20151104
  2. BENDAMUSTINE HYDROCHLORIDE [Suspect]
     Active Substance: BENDAMUSTINE HYDROCHLORIDE
     Dosage: [4TH LINE SYSTEMIC TREATMENT (R-BENDA- POLATUZUMAB), COMPLETE REMISSION]
     Route: 042
     Dates: start: 20201123, end: 20210309
  3. RITUXIMAB [Suspect]
     Active Substance: RITUXIMAB
     Indication: Diffuse large B-cell lymphoma
     Dosage: .[1ST LINE SYSTEMIC TREATMENT (R-CHOP), COMPLETE REMISSION]
     Route: 065
     Dates: start: 20071101, end: 20080101
  4. RITUXIMAB [Suspect]
     Active Substance: RITUXIMAB
     Dosage: 3RD LINE SYSTEMIC TREATMENT (RITUXIMAB+BENDAMUSTIN), COMPLETE REMISSION]
     Route: 065
     Dates: start: 20150606, end: 20151104
  5. RITUXIMAB [Suspect]
     Active Substance: RITUXIMAB
     Dosage: 4TH LINE SYSTEMIC TREATMENT (R-BENDA- POLATUZUMAB), COMPLETE REMISSION]
     Route: 065
     Dates: start: 20201123, end: 20210309
  6. POLIVY [Suspect]
     Active Substance: POLATUZUMAB VEDOTIN-PIIQ
     Indication: Diffuse large B-cell lymphoma
     Dosage: (4TH LINE SYSTEMIC TREATMENT (R-BENDA- POLATUZUMAB), COMPLETE REMISSION)
     Route: 065
     Dates: start: 20201123, end: 20210309
  7. CYCLOPHOSPHAMIDE\DOXORUBICIN\PREDNISONE\VINCRISTINE [Suspect]
     Active Substance: CYCLOPHOSPHAMIDE\DOXORUBICIN\PREDNISONE\VINCRISTINE
     Indication: Diffuse large B-cell lymphoma
     Dosage: .[1ST LINE SYSTEMIC TREATMENT (R-CHOP), COMPLETE REMISSION]
     Route: 065
  8. BEAM [Suspect]
     Active Substance: SODIUM FLUORIDE
     Indication: Diffuse large B-cell lymphoma
     Dosage: [2ND LINE SYSTEMIC TREATMENT(R IKE AS CONDITIONING BEFORE BEAM)COMPLETE REMISSION]
     Route: 065
     Dates: start: 20090901, end: 20100301

REACTIONS (2)
  - Malignant neoplasm progression [Unknown]
  - Off label use [Unknown]

NARRATIVE: CASE EVENT DATE: 20150606
